FAERS Safety Report 8343335-2 (Version None)
Quarter: 2012Q2

REPORT INFORMATION
  Report Type: 
  Country: None (occurrence: None)
  Receive Date: 20120508
  Receipt Date: 20120503
  Transmission Date: 20120825
  Serious: Yes (Hospitalization)
  Sender: FDA-Public Use
  Company Number: PHHY2012FR008736

PATIENT
  Sex: Male
  Weight: 89 kg

DRUGS (4)
  1. ASPIRIN [Concomitant]
     Dosage: UNK
  2. PERINDOPRIL ERBUMINE [Concomitant]
     Dosage: UNK
  3. MODURETIC 5-50 [Concomitant]
     Dosage: UNK
  4. GLEEVEC [Suspect]
     Dosage: 500 MG, DAILY

REACTIONS (2)
  - BRONCHITIS [None]
  - VITAMIN B12 DECREASED [None]
